FAERS Safety Report 5338765-7 (Version None)
Quarter: 2007Q2

REPORT INFORMATION
  Report Type: 
  Country: None (occurrence: None)
  Receive Date: 20070530
  Receipt Date: 20060427
  Transmission Date: 20071010
  Serious: Yes (Death)
  Sender: FDA-Public Use
  Company Number: AU-ROCHE-446197

PATIENT
  Age: 35 Year
  Sex: Male

DRUGS (2)
  1. CLONAZEPAM [Suspect]
     Indication: DRUG USE FOR UNKNOWN INDICATION
     Route: 030
  2. ZYPREXA [Suspect]
     Route: 030
     Dates: start: 20060101

REACTIONS (2)
  - CARDIAC ARREST [None]
  - OVERDOSE [None]
